FAERS Safety Report 9866890 (Version 1)
Quarter: 2014Q1

REPORT INFORMATION
  Report Type: Spontaneous
  Country: US (occurrence: None)
  Receive Date: 20140203
  Receipt Date: 20140203
  Transmission Date: 20141002
  Serious: Yes (Disabling)
  Sender: FDA-Public Use
  Company Number: None

PATIENT
  Age: 61 Year
  Sex: Male
  Weight: 92.99 kg

DRUGS (1)
  1. BACTRIM DS 800 MG/ 160 MG [Suspect]
     Indication: PROSTATITIS
     Route: 048
     Dates: start: 20140107, end: 20140121

REACTIONS (1)
  - Myalgia [None]
